FAERS Safety Report 6569644-5 (Version None)
Quarter: 2010Q1

REPORT INFORMATION
  Report Type: 
  Country: None (occurrence: None)
  Receive Date: 20100203
  Receipt Date: 20100203
  Transmission Date: 20100710
  Serious: Yes (Other)
  Sender: FDA-Public Use
  Company Number: None

PATIENT
  Sex: Female
  Weight: 55.3388 kg

DRUGS (1)
  1. CALCITONIN SALMON 200 U. APOTEX CORP. [Suspect]
     Indication: OSTEOPOROSIS
     Dosage: 1 SPRAY ALTERNATING NOSTRIL 1 DAILY NOSE
     Route: 045
     Dates: start: 20091101, end: 20100101

REACTIONS (1)
  - PRODUCT QUALITY ISSUE [None]
